FAERS Safety Report 7823330-X (Version None)
Quarter: 2011Q4

REPORT INFORMATION
  Report Type: 
  Country: None (occurrence: None)
  Receive Date: 20111019
  Receipt Date: 20111008
  Transmission Date: 20120403
  Serious: Yes (Hospitalization)
  Sender: FDA-Public Use
  Company Number: BE-PAR PHARMACEUTICAL, INC-2011SCPR003285

PATIENT

DRUGS (1)
  1. DISULFIRAM [Suspect]
     Indication: PRODUCT USED FOR UNKNOWN INDICATION
     Dosage: 1.2 G, PER DAY
     Route: 065

REACTIONS (3)
  - TOXICITY TO VARIOUS AGENTS [None]
  - RADICULOPATHY [None]
  - POSTERIOR REVERSIBLE ENCEPHALOPATHY SYNDROME [None]
